FAERS Safety Report 5728443-4 (Version None)
Quarter: 2008Q2

REPORT INFORMATION
  Report Type: 
  Country: None (occurrence: None)
  Receive Date: 20080506
  Receipt Date: 20080401
  Transmission Date: 20081010
  Serious: No
  Sender: FDA-Public Use
  Company Number: US-BAYER-200818618NA

PATIENT
  Age: 79 Year
  Sex: Female

DRUGS (2)
  1. BETAPACE [Suspect]
     Indication: UNEVALUABLE EVENT
     Dosage: UNIT DOSE: 120 MG
  2. BETAPACE [Suspect]
     Dosage: UNIT DOSE: 80 MG

REACTIONS (2)
  - DYSPNOEA [None]
  - HEART RATE DECREASED [None]
